FAERS Safety Report 18818555 (Version 5)
Quarter: 2023Q1

REPORT INFORMATION
  Report Type: Report from Study
  Country: KR (occurrence: KR)
  Receive Date: 20210202
  Receipt Date: 20230127
  Transmission Date: 20230418
  Serious: Yes (Hospitalization, Other)
  Sender: FDA-Public Use
  Company Number: KR-OTSUKA-2021_001871

PATIENT
  Age: 69 Year
  Sex: Female

DRUGS (31)
  1. PONATINIB [Suspect]
     Active Substance: PONATINIB
     Indication: Philadelphia positive acute lymphocytic leukaemia
     Dosage: 45 MG, QD
     Route: 048
     Dates: start: 20191009, end: 20191107
  2. PONATINIB [Suspect]
     Active Substance: PONATINIB
     Dosage: 45 MG, QD
     Route: 048
     Dates: start: 20191205
  3. DIABEX [Concomitant]
     Active Substance: METFORMIN HYDROCHLORIDE
     Indication: Diabetes mellitus
     Dosage: UNK, BID
     Route: 048
     Dates: start: 20181129
  4. DIABEX [Concomitant]
     Active Substance: METFORMIN HYDROCHLORIDE
     Dosage: UNK UNK, BID
     Route: 048
     Dates: start: 20181129
  5. DILATREN [Concomitant]
     Indication: Chest pain
     Dosage: UNK, BID
     Route: 048
     Dates: start: 20170320
  6. RABEPRAZOLE SODIUM [Concomitant]
     Active Substance: RABEPRAZOLE SODIUM
     Indication: Gastrointestinal disorder prophylaxis
     Dosage: UNK, QD
     Route: 048
     Dates: start: 20191005, end: 20191205
  7. MOSAPRIDE CITRATE [Concomitant]
     Active Substance: MOSAPRIDE CITRATE
     Indication: Gastrointestinal disorder prophylaxis
     Dosage: 1 DF, TID
     Route: 048
     Dates: start: 20191006, end: 20191205
  8. TACOPEN [Concomitant]
     Indication: Flank pain
     Dosage: UNK, TID
     Route: 048
     Dates: start: 20191010, end: 20191204
  9. URSODIOL [Concomitant]
     Active Substance: URSODIOL
     Indication: Prophylaxis
     Dosage: 1 DF, TID
     Route: 048
     Dates: start: 20191010, end: 20191204
  10. URSODIOL [Concomitant]
     Active Substance: URSODIOL
     Indication: Liver disorder
  11. SANCUSO [Concomitant]
     Active Substance: GRANISETRON
     Indication: Prophylaxis of nausea and vomiting
     Dosage: 1PATCH QD (80.2X66.6MM^2)
     Route: 062
     Dates: start: 20191023, end: 20191029
  12. MESNA [Concomitant]
     Active Substance: MESNA
     Indication: Chemotherapy side effect prophylaxis
     Dosage: 220 MILLIGRAM, TID
     Route: 042
     Dates: start: 20191023, end: 20191025
  13. EMEND [Concomitant]
     Active Substance: APREPITANT
     Indication: Prophylaxis of nausea and vomiting
     Dosage: UNK UNK, QD
     Route: 048
     Dates: start: 20191023, end: 20191023
  14. EMEND [Concomitant]
     Active Substance: APREPITANT
     Dosage: UNK UNK, QD
     Route: 048
     Dates: start: 20191024, end: 20191025
  15. CYCLOPHOSPHAMIDE [Concomitant]
     Active Substance: CYCLOPHOSPHAMIDE
     Indication: Chemotherapy
     Dosage: 360 MILLIGRAM, BID
     Route: 042
     Dates: start: 20191023, end: 20191025
  16. LECTACIN [Concomitant]
     Indication: Infection prophylaxis
     Dosage: UNK, QD
     Route: 048
     Dates: start: 20191023, end: 20191107
  17. FLUCOZOLE [Concomitant]
     Indication: Infection prophylaxis
     Dosage: UNK, BID
     Route: 048
     Dates: start: 20191023, end: 20191115
  18. SULFAMETHOXAZOLE\TRIMETHOPRIM [Concomitant]
     Active Substance: SULFAMETHOXAZOLE\TRIMETHOPRIM
     Indication: Infection prophylaxis
     Dosage: UNK, QD
     Route: 048
     Dates: start: 20191024, end: 20191204
  19. LIDOCAINE [Concomitant]
     Active Substance: LIDOCAINE
     Indication: Anaesthesia
     Dosage: UNK, QD
     Route: 042
     Dates: start: 20191024, end: 20191024
  20. LASIX [Concomitant]
     Active Substance: FUROSEMIDE
     Indication: Prophylaxis
     Dosage: UNK, QD
     Route: 042
     Dates: start: 20191025, end: 20191026
  21. LASIX [Concomitant]
     Active Substance: FUROSEMIDE
     Indication: Urine output decreased
     Dosage: UNK, QD
     Route: 042
     Dates: start: 20191026, end: 20191026
  22. ADRIAMYCIN [Concomitant]
     Active Substance: DOXORUBICIN HYDROCHLORIDE
     Indication: Chemotherapy
     Dosage: 50 MILLIGRAM, QD
     Route: 042
     Dates: start: 20191026, end: 20191026
  23. ADRIAMYCIN [Concomitant]
     Active Substance: DOXORUBICIN HYDROCHLORIDE
     Dosage: 10 MILLIGRAM, QD
     Route: 042
     Dates: start: 20191026, end: 20191026
  24. VINCRISTINE SULFATE [Concomitant]
     Active Substance: VINCRISTINE SULFATE
     Indication: Chemotherapy
     Dosage: 1.6 MG, QD
     Route: 042
     Dates: start: 20191026, end: 20191026
  25. VINCRISTINE SULFATE [Concomitant]
     Active Substance: VINCRISTINE SULFATE
     Dosage: 1.6 MG, QD
     Route: 042
     Dates: start: 20191102, end: 20191102
  26. AMINO ACIDS\DEXTROSE\ELECTROLYTES NOS [Concomitant]
     Active Substance: AMINO ACIDS\DEXTROSE\ELECTROLYTES NOS
     Indication: Nutritional supplementation
     Dosage: UNK, QD
     Route: 042
     Dates: start: 20191029, end: 20191029
  27. MEGACE F [Concomitant]
     Indication: Prophylaxis
     Dosage: UNK UNK, QD
     Route: 048
     Dates: start: 20191030, end: 20191205
  28. MEGACE F [Concomitant]
     Indication: Decreased appetite
  29. LACTULOSE [Concomitant]
     Active Substance: LACTULOSE
     Indication: Constipation prophylaxis
     Dosage: UNK, QD
     Route: 048
     Dates: start: 20191101, end: 20191101
  30. LACTULOSE [Concomitant]
     Active Substance: LACTULOSE
     Dosage: UNK
     Route: 048
     Dates: start: 20191107, end: 20191109
  31. LENOGRASTIM [Concomitant]
     Active Substance: LENOGRASTIM
     Indication: Neutrophil count decreased
     Dosage: UNK, QD
     Route: 058
     Dates: start: 20191106, end: 20191109

REACTIONS (6)
  - Bronchopulmonary aspergillosis [Recovered/Resolved]
  - Hyperkalaemia [Recovered/Resolved]
  - Neutrophil count decreased [Recovered/Resolved]
  - Urticaria [Recovered/Resolved]
  - Nausea [Recovered/Resolved]
  - Paraesthesia [Recovered/Resolved]

NARRATIVE: CASE EVENT DATE: 20191014
